FAERS Safety Report 6822672-4 (Version None)
Quarter: 2010Q3

REPORT INFORMATION
  Report Type: 
  Country: None (occurrence: None)
  Receive Date: 20100708
  Receipt Date: 20100701
  Transmission Date: 20110219
  Serious: Yes (Hospitalization)
  Sender: FDA-Public Use
  Company Number: PL-ROCHE-702376

PATIENT
  Sex: Female
  Weight: 74 kg

DRUGS (10)
  1. BLINDED TOCILIZUMAB [Suspect]
     Indication: RHEUMATOID ARTHRITIS
     Dosage: LAST DOSE PRIOR TO SAE WAS ON 27 SEPTEMBER 2006.  DOSE FORM: INFUSION.
     Route: 042
     Dates: start: 20060705
  2. BLINDED TOCILIZUMAB [Suspect]
     Dosage: DOSE FORM: INFUSION.LAST DOSE PRIOR TO SAE WAS ON 05 MAY 2010.PERMANENTLY DISCONTINUED.
     Route: 042
     Dates: start: 20061025, end: 20100510
  3. METHOTREXATE [Suspect]
     Indication: RHEUMATOID ARTHRITIS
     Route: 065
     Dates: start: 19990201, end: 20050912
  4. METHOTREXATE [Suspect]
     Route: 065
     Dates: start: 20050923, end: 20100509
  5. FOLIC ACID [Concomitant]
     Dates: start: 20030613, end: 20100509
  6. PREDNISONE [Concomitant]
     Dates: start: 20060412
  7. LEVOTHYROXINE SODIUM [Concomitant]
     Dates: start: 20010201
  8. LANSOPRAZOLE [Concomitant]
     Dates: start: 20021002, end: 20100509
  9. KETOPROFEN [Concomitant]
     Dates: start: 20060213, end: 20100509
  10. SIMVASTATIN [Concomitant]
     Dates: start: 20080924

REACTIONS (1)
  - ASCITES [None]
